FAERS Safety Report 5154702-2 (Version None)
Quarter: 2006Q4

REPORT INFORMATION
  Report Type: 
  Country: None (occurrence: None)
  Receive Date: 20061114
  Receipt Date: 20061030
  Transmission Date: 20070319
  Serious: Yes (Life-Threatening, Hospitalization, Disabling, Other)
  Sender: FDA-Public Use
  Company Number: 2005042730

PATIENT
  Age: 42 Year
  Sex: Male
  Weight: 68.18 kg

DRUGS (12)
  1. NEURONTIN [Suspect]
     Indication: BIPOLAR DISORDER
     Dosage: 900 MG (300 MG , 3 IN 1 D), UNKNOWN
     Dates: start: 20020201, end: 20030101
  2. NEURONTIN [Suspect]
     Indication: DEPRESSION
     Dosage: 900 MG (300 MG , 3 IN 1 D), UNKNOWN
     Dates: start: 20020201, end: 20030101
  3. PERCOCET [Concomitant]
  4. PAXIL [Suspect]
  5. CODEINE SUL TAB [Concomitant]
  6. FIORICET [Concomitant]
  7. THORAZINE [Concomitant]
  8. AMBIEN [Concomitant]
  9. TRILEPTAL [Concomitant]
  10. LAMICTAL [Concomitant]
  11. SEROQUEL [Concomitant]
  12. CARISOPRODOL [Concomitant]

REACTIONS (44)
  - ABNORMAL BEHAVIOUR [None]
  - AGITATION [None]
  - ANAEMIA [None]
  - ANOREXIA [None]
  - ATELECTASIS [None]
  - BLINDNESS TRAUMATIC [None]
  - CEREBRAL HAEMORRHAGE [None]
  - COGNITIVE DISORDER [None]
  - CONCUSSION [None]
  - CONFUSIONAL STATE [None]
  - CONTUSION [None]
  - DACRYOCYSTITIS INFECTIVE [None]
  - DACRYOSTENOSIS ACQUIRED [None]
  - DELIRIUM [None]
  - DIABETES INSIPIDUS [None]
  - DRUG INEFFECTIVE [None]
  - DYSPEPSIA [None]
  - DYSPHAGIA [None]
  - EYE EXCISION [None]
  - EYE LUXATION [None]
  - EYELID PTOSIS [None]
  - FACIAL BONES FRACTURE [None]
  - FACIAL PAIN [None]
  - GUN SHOT WOUND [None]
  - HEADACHE [None]
  - HYPERCOAGULATION [None]
  - HYPOCALCAEMIA [None]
  - HYPOMAGNESAEMIA [None]
  - LACRIMAL DISORDER [None]
  - LETHARGY [None]
  - LOSS OF CONSCIOUSNESS [None]
  - LUNG INFECTION PSEUDOMONAL [None]
  - MALNUTRITION [None]
  - NERVE INJURY [None]
  - PLEURAL EFFUSION [None]
  - PNEUMOCEPHALUS [None]
  - POISONING [None]
  - POST PROCEDURAL COMPLICATION [None]
  - PSEUDOMONAS INFECTION [None]
  - RESPIRATORY FAILURE [None]
  - ROAD TRAFFIC ACCIDENT [None]
  - SOFT TISSUE INJURY [None]
  - SUICIDE ATTEMPT [None]
  - TRANSPLANT [None]
